FAERS Safety Report 5766889-9 (Version None)
Quarter: 2008Q2

REPORT INFORMATION
  Report Type: 
  Country: None (occurrence: None)
  Receive Date: 20080609
  Receipt Date: 20080521
  Transmission Date: 20081010
  Serious: Yes (Hospitalization)
  Sender: FDA-Public Use
  Company Number: 2008EU000354

PATIENT
  Age: 31 Year
  Sex: Male

DRUGS (3)
  1. PROGRAF [Suspect]
     Indication: LUNG TRANSPLANT
     Dosage: /D, ORAL
     Route: 048
  2. CELLCEPT [Suspect]
     Indication: LUNG TRANSPLANT
     Dosage: /D, ORAL; 1 DF, TID ORAL
     Route: 048
  3. CERTICAN [Suspect]
     Indication: LUNG TRANSPLANT
     Dosage: 25 MG, BID, ORAL
     Route: 048

REACTIONS (2)
  - DRUG INTERACTION [None]
  - RESPIRATORY SYNCYTIAL VIRUS INFECTION [None]
